FAERS Safety Report 7438042-4 (Version None)
Quarter: 2011Q2

REPORT INFORMATION
  Report Type: 
  Country: None (occurrence: None)
  Receive Date: 20110426
  Receipt Date: 20110411
  Transmission Date: 20111010
  Serious: Yes (Hospitalization, Other)
  Sender: FDA-Public Use
  Company Number: PHHY2011US30452

PATIENT
  Age: 28 Year
  Sex: Male

DRUGS (6)
  1. CARBAMAZEPINE [Suspect]
     Indication: CONVULSION
  2. CARBAMAZEPINE [Suspect]
     Dosage: 100 MG, BID
  3. FLUOXETINE [Concomitant]
     Dosage: 20 MG, DAILY
  4. LEVETIRACETAM [Suspect]
     Dosage: 500 MG, BID
     Dates: start: 20081201
  5. CARBAMAZEPINE [Suspect]
     Dosage: UNK UKN, UNK
  6. CARBAMAZEPINE [Suspect]
     Dosage: 200 MG, TID

REACTIONS (11)
  - MOOD SWINGS [None]
  - ABNORMAL BEHAVIOUR [None]
  - IRRITABILITY [None]
  - AGGRESSION [None]
  - AGITATION [None]
  - CONVULSION [None]
  - SUICIDAL IDEATION [None]
  - DEPRESSION [None]
  - INSOMNIA [None]
  - PANIC ATTACK [None]
  - TREATMENT NONCOMPLIANCE [None]
